FAERS Safety Report 8052717-8 (Version None)
Quarter: 2012Q1

REPORT INFORMATION
  Report Type: 
  Country: None (occurrence: None)
  Receive Date: 20120118
  Receipt Date: 20120118
  Transmission Date: 20120608
  Serious: Yes (Other)
  Sender: FDA-Public Use
  Company Number: None

PATIENT
  Sex: Female
  Weight: 26.308 kg

DRUGS (2)
  1. SINGULAIR [Suspect]
     Indication: ASTHMA
     Dosage: 1 PILL
     Route: 048
     Dates: start: 20111221, end: 20120113
  2. CLARITIN [Concomitant]

REACTIONS (6)
  - ABNORMAL BEHAVIOUR [None]
  - MENTAL DISORDER [None]
  - INTENTIONAL SELF-INJURY [None]
  - AGGRESSION [None]
  - FRUSTRATION [None]
  - ANGER [None]
